FAERS Safety Report 21485562 (Version 1)
Quarter: 2022Q4

REPORT INFORMATION
  Report Type: Spontaneous
  Country: PL (occurrence: PL)
  Receive Date: 20221020
  Receipt Date: 20221020
  Transmission Date: 20230112
  Serious: Yes (Other)
  Sender: FDA-Public Use
  Company Number: None

PATIENT
  Age: 23 Year
  Sex: Female
  Weight: 68 kg

DRUGS (1)
  1. ETONOGESTREL [Suspect]
     Active Substance: ETONOGESTREL
     Indication: Hormonal contraception
     Dosage: UNK
     Route: 059
     Dates: start: 20210820, end: 20220203

REACTIONS (2)
  - Pregnancy with implant contraceptive [Recovered/Resolved]
  - Drug ineffective [Recovered/Resolved]
